FAERS Safety Report 25671953 (Version 4)
Quarter: 2025Q3

REPORT INFORMATION
  Report Type: Report from Study
  Country: US (occurrence: US)
  Receive Date: 20250812
  Receipt Date: 20250825
  Transmission Date: 20251021
  Serious: Yes (Other)
  Sender: MALLINCKRODT
  Company Number: US-MALLINCKRODT-MNK202504935

PATIENT
  Age: 67 Year
  Sex: Female
  Weight: 125 kg

DRUGS (1)
  1. CORTICOTROPIN [Suspect]
     Active Substance: CORTICOTROPIN
     Indication: Punctate keratitis
     Route: 058
     Dates: start: 20250807, end: 202508

REACTIONS (6)
  - Multiple sclerosis relapse [Unknown]
  - Colitis [Unknown]
  - Gastrointestinal ulcer [Unknown]
  - Condition aggravated [Unknown]
  - Injection site pain [Unknown]
  - Contraindicated product administered [Unknown]

NARRATIVE: CASE EVENT DATE: 20250801
